FAERS Safety Report 20908325 (Version 1)
Quarter: 2022Q2

REPORT INFORMATION
  Report Type: Spontaneous
  Country: FR (occurrence: FR)
  Receive Date: 20220603
  Receipt Date: 20220603
  Transmission Date: 20220721
  Serious: Yes (Other)
  Sender: FDA-Public Use
  Company Number: FR-SUN PHARMACEUTICAL INDUSTRIES LTD-2022R1-338991

PATIENT
  Age: 60 Year
  Sex: Male

DRUGS (3)
  1. OXYCODONE [Suspect]
     Active Substance: OXYCODONE
     Indication: Analgesic therapy
     Dosage: 10 MILLIGRAM, TID
     Route: 065
  2. CORTISONE [Suspect]
     Active Substance: CORTISONE
     Indication: Analgesic therapy
     Dosage: UNK
     Route: 065
  3. SOLU-MEDROL [Suspect]
     Active Substance: METHYLPREDNISOLONE SODIUM SUCCINATE
     Indication: Analgesic therapy
     Dosage: UNK
     Route: 030

REACTIONS (1)
  - Treatment failure [Unknown]
